FAERS Safety Report 23453185 (Version 1)
Quarter: 2024Q1

REPORT INFORMATION
  Report Type: Spontaneous
  Country: US (occurrence: None)
  Receive Date: 20240129
  Receipt Date: 20240129
  Transmission Date: 20240409
  Serious: No
  Sender: FDA-Public Use
  Company Number: None

PATIENT
  Age: 17 Month
  Sex: Male

DRUGS (2)
  1. TOBRAMYCIN [Suspect]
     Active Substance: TOBRAMYCIN
     Indication: Neonatal respiratory failure
     Dosage: 300 MG INHALATION?
     Route: 050
     Dates: start: 202401
  2. SILDENAFIL [Suspect]
     Active Substance: SILDENAFIL
     Indication: Neonatal respiratory failure
     Dosage: 0.95 ML THREE TIMES A DAY VIA G-TUBE?
     Route: 050
     Dates: start: 202401

REACTIONS (1)
  - Emergency care [None]

NARRATIVE: CASE EVENT DATE: 20240126
